FAERS Safety Report 18122575 (Version 1)
Quarter: 2020Q3

REPORT INFORMATION
  Report Type: Spontaneous
  Country: CA (occurrence: CA)
  Receive Date: 20200807
  Receipt Date: 20200807
  Transmission Date: 20201103
  Serious: Yes (Hospitalization)
  Sender: FDA-Public Use
  Company Number: CA-TEVA-2020-CA-1810236

PATIENT
  Age: 4 Year
  Sex: Male

DRUGS (10)
  1. METHOTREXATE INJECTION USP SINGLE USE VIALS. PRESERVATIVE?FREE [Suspect]
     Active Substance: METHOTREXATE
     Route: 065
  2. SULFAMETHOXAZOLE AND TRIMETHOPRIM [Concomitant]
     Active Substance: SULFAMETHOXAZOLE\TRIMETHOPRIM
  3. VINCRISTINE SULFATE. [Concomitant]
     Active Substance: VINCRISTINE SULFATE
  4. NEUPOGEN [Concomitant]
     Active Substance: FILGRASTIM
  5. POLYETHYLENE GLYCOL [Concomitant]
     Active Substance: POLYETHYLENE GLYCOLS
  6. PROCYTOX (CYCLOPHOSPHAMIDE) 1000MG/VIAL [Suspect]
     Active Substance: CYCLOPHOSPHAMIDE
     Route: 065
  7. DOXORUBICIN LIPOSOMAL [Concomitant]
     Active Substance: DOXORUBICIN
  8. PREDNISONE. [Concomitant]
     Active Substance: PREDNISONE
  9. ONDANSETRON [Concomitant]
     Active Substance: ONDANSETRON
  10. RITUXIMAB GP2013 [Concomitant]
     Active Substance: RITUXIMAB

REACTIONS (2)
  - Burkitt^s lymphoma [Unknown]
  - Abdominal mass [Unknown]
